FAERS Safety Report 9252360 (Version 1)
Quarter: 2013Q2

REPORT INFORMATION
  Report Type: Spontaneous
  Country: DE (occurrence: DE)
  Receive Date: 20130424
  Receipt Date: 20130424
  Transmission Date: 20140414
  Serious: Yes (Other)
  Sender: FDA-Public Use
  Company Number: GXKR2013DE001577

PATIENT
  Sex: Female

DRUGS (3)
  1. 5-FU [Suspect]
     Route: 065
  2. OXALIPLATIN [Suspect]
     Route: 065
  3. CALCIUMFOLINAT HEXAL [Suspect]
     Route: 065

REACTIONS (1)
  - Major depression [Unknown]
